FAERS Safety Report 14755480 (Version 3)
Quarter: 2018Q2

REPORT INFORMATION
  Report Type: Spontaneous
  Country: US (occurrence: US)
  Receive Date: 20180413
  Receipt Date: 20180601
  Transmission Date: 20180711
  Serious: No
  Sender: FDA-Public Use
  Company Number: US-JNJFOC-20180408986

PATIENT
  Age: 44 Year
  Sex: Female

DRUGS (6)
  1. SIMPONI [Suspect]
     Active Substance: GOLIMUMAB
     Indication: ANKYLOSING SPONDYLITIS
     Route: 058
     Dates: start: 2017
  2. SULFASALAZINE. [Concomitant]
     Active Substance: SULFASALAZINE
     Indication: COLITIS ULCERATIVE
     Route: 065
     Dates: start: 2016
  3. SULFASALAZINE. [Concomitant]
     Active Substance: SULFASALAZINE
     Indication: ANKYLOSING SPONDYLITIS
     Route: 065
     Dates: start: 2016
  4. BENADRYL [Concomitant]
     Active Substance: DIPHENHYDRAMINE HYDROCHLORIDE
     Indication: COLITIS ULCERATIVE
     Route: 065
     Dates: start: 2016
  5. IMODIUM [Concomitant]
     Active Substance: LOPERAMIDE HYDROCHLORIDE
     Indication: COLITIS ULCERATIVE
     Route: 065
     Dates: start: 2016
  6. URSODIOL. [Concomitant]
     Active Substance: URSODIOL
     Indication: COLITIS ULCERATIVE
     Route: 065
     Dates: start: 2016

REACTIONS (3)
  - Needle issue [Unknown]
  - Accidental exposure to product [Unknown]
  - Drug dose omission [Unknown]

NARRATIVE: CASE EVENT DATE: 201803
